FAERS Safety Report 25284100 (Version 2)
Quarter: 2025Q2

REPORT INFORMATION
  Report Type: Report from Study
  Country: DE (occurrence: DE)
  Receive Date: 20250508
  Receipt Date: 20250509
  Transmission Date: 20250717
  Serious: Yes (Death)
  Sender: BAYER HEALTHCARE PHARMACEUTICALS INC.
  Company Number: DE-BAYER-2025A062215

PATIENT
  Age: 73 Year
  Sex: Male

DRUGS (13)
  1. ADEMPAS [Suspect]
     Active Substance: RIOCIGUAT
     Indication: Pulmonary arterial hypertension
     Dates: end: 20250503
  2. WINREVAIR [Concomitant]
     Active Substance: SOTATERCEPT-CSRK
     Indication: Pulmonary arterial hypertension
     Dates: start: 20250414, end: 20250503
  3. SELEXIPAG [Concomitant]
     Active Substance: SELEXIPAG
  4. MACITENTAN [Concomitant]
     Active Substance: MACITENTAN
  5. BISOPROLOL [Concomitant]
     Active Substance: BISOPROLOL
  6. RAMIPRIL [Concomitant]
     Active Substance: RAMIPRIL
  7. TORSEMIDE [Concomitant]
     Active Substance: TORSEMIDE
  8. PANTOPRAZOLE SODIUM [Concomitant]
     Active Substance: PANTOPRAZOLE SODIUM
  9. ASPIRIN [Concomitant]
     Active Substance: ASPIRIN
  10. Kalinor [Concomitant]
  11. ALLOPURINOL [Concomitant]
     Active Substance: ALLOPURINOL
  12. GLYCOPYRRONIUM\INDACATEROL [Concomitant]
     Active Substance: GLYCOPYRRONIUM\INDACATEROL
  13. OXYGEN [Concomitant]
     Active Substance: OXYGEN

REACTIONS (1)
  - Death [Fatal]

NARRATIVE: CASE EVENT DATE: 20250503
